FAERS Safety Report 10879129 (Version 2)
Quarter: 2015Q2

REPORT INFORMATION
  Report Type: Spontaneous
  Country: US (occurrence: US)
  Receive Date: 20150302
  Receipt Date: 20150612
  Transmission Date: 20150821
  Serious: No
  Sender: FDA-Public Use
  Company Number: US-GLAXOSMITHKLINE-US2015008826

PATIENT
  Sex: Male

DRUGS (21)
  1. CELEBREX [Concomitant]
     Active Substance: CELECOXIB
  2. ASPIRIN. [Concomitant]
     Active Substance: ASPIRIN
  3. NIFEDICAL XL [Concomitant]
     Active Substance: NIFEDIPINE
  4. CARVEDILOL. [Concomitant]
     Active Substance: CARVEDILOL
  5. FISH OIL [Concomitant]
     Active Substance: FISH OIL
  6. OSTEO BIFLEX [Concomitant]
     Active Substance: CHONDROITIN SULFATE A\GLUCOSAMINE
  7. ACETAMINOPHEN + CODEINE [Concomitant]
  8. FLEXERIL [Concomitant]
     Active Substance: CYCLOBENZAPRINE HYDROCHLORIDE
  9. POTASSIUM CHLORIDE. [Concomitant]
     Active Substance: POTASSIUM CHLORIDE
  10. VITAMIN B12 SHOTS [Concomitant]
  11. AYR NASAL SPRAY (SALINE) [Concomitant]
  12. FUROSEMIDE. [Concomitant]
     Active Substance: FUROSEMIDE
  13. LOSARTAN [Concomitant]
     Active Substance: LOSARTAN
  14. TERAZOSIN [Concomitant]
     Active Substance: TERAZOSIN\TERAZOSIN HYDROCHLORIDE
  15. VITAMIN C [Concomitant]
     Active Substance: ASCORBIC ACID
  16. VITAMIN E [Concomitant]
     Active Substance: .ALPHA.-TOCOPHEROL
  17. ADVAIR DISKUS [Suspect]
     Active Substance: FLUTICASONE PROPIONATE\SALMETEROL XINAFOATE
     Indication: CHRONIC OBSTRUCTIVE PULMONARY DISEASE
     Dosage: 250/50
     Route: 055
  18. BREO ELLIPTA [Suspect]
     Active Substance: FLUTICASONE FUROATE\VILANTEROL TRIFENATATE
     Indication: CHRONIC OBSTRUCTIVE PULMONARY DISEASE
     Dosage: 1 PUFF(S), QD
     Route: 055
     Dates: start: 20141224
  19. PROVENTIL [Concomitant]
     Active Substance: ALBUTEROL
  20. CETIRIZINE [Concomitant]
     Active Substance: CETIRIZINE HYDROCHLORIDE
  21. TRAMADOL [Concomitant]
     Active Substance: TRAMADOL

REACTIONS (4)
  - Cough [Not Recovered/Not Resolved]
  - Productive cough [Not Recovered/Not Resolved]
  - Dysphonia [Not Recovered/Not Resolved]
  - Insomnia [Not Recovered/Not Resolved]
